FAERS Safety Report 15049646 (Version 1)
Quarter: 2018Q2

REPORT INFORMATION
  Report Type: Spontaneous
  Country: US (occurrence: US)
  Receive Date: 20180622
  Receipt Date: 20180622
  Transmission Date: 20180711
  Serious: No
  Sender: FDA-Public Use
  Company Number: US-SHIRE-US201822307

PATIENT
  Age: 60 Year
  Sex: Female

DRUGS (1)
  1. GATTEX [Suspect]
     Active Substance: TEDUGLUTIDE\WATER
     Indication: SHORT-BOWEL SYNDROME
     Dosage: 0.335 ML, 1X/DAY:QD
     Route: 065
     Dates: start: 20160817

REACTIONS (2)
  - Diarrhoea [Unknown]
  - Limb mass [Unknown]

NARRATIVE: CASE EVENT DATE: 20180524
